FAERS Safety Report 16985048 (Version 1)
Quarter: 2019Q4

REPORT INFORMATION
  Report Type: Spontaneous
  Country: US (occurrence: US)
  Receive Date: 20191101
  Receipt Date: 20191101
  Transmission Date: 20200122
  Serious: No
  Sender: FDA-Public Use
  Company Number: US-ELI_LILLY_AND_COMPANY-US201910011674

PATIENT
  Sex: Female

DRUGS (2)
  1. TOVIAZ [Interacting]
     Active Substance: FESOTERODINE FUMARATE
     Indication: PRODUCT USED FOR UNKNOWN INDICATION
     Dosage: 1 DOSAGE FORM, UNKNOWN
     Route: 065
  2. EMGALITY [Suspect]
     Active Substance: GALCANEZUMAB-GNLM
     Indication: MIGRAINE
     Dosage: 120 MG, UNKNOWN
     Route: 065

REACTIONS (6)
  - Muscle tightness [Unknown]
  - Feeling abnormal [Unknown]
  - Drug interaction [Recovered/Resolved]
  - Dizziness [Unknown]
  - Underdose [Unknown]
  - Flushing [Unknown]
